FAERS Safety Report 17002157 (Version 1)
Quarter: 2019Q4

REPORT INFORMATION
  Report Type: Spontaneous
  Country: US (occurrence: US)
  Receive Date: 20191106
  Receipt Date: 20191106
  Transmission Date: 20200122
  Serious: No
  Sender: FDA-Public Use
  Company Number: US-ROCHE-2361108

PATIENT
  Age: 10 Year
  Sex: Male

DRUGS (3)
  1. PULMOZYME [Suspect]
     Active Substance: DORNASE ALFA
     Dosage: ONGOING: YES
     Route: 065
     Dates: start: 20190708
  2. PULMOZYME [Suspect]
     Active Substance: DORNASE ALFA
     Dosage: ONGOING: YES
     Route: 065
  3. PULMOZYME [Suspect]
     Active Substance: DORNASE ALFA
     Indication: BRONCHIAL SECRETION RETENTION
     Dosage: ONGOING: NO
     Route: 065
     Dates: start: 201906

REACTIONS (4)
  - Off label use [Unknown]
  - Intentional product use issue [Unknown]
  - No adverse event [Unknown]
  - Product storage error [Unknown]

NARRATIVE: CASE EVENT DATE: 20190708
